FAERS Safety Report 10008694 (Version 1)
Quarter: 2014Q1

REPORT INFORMATION
  Report Type: Spontaneous
  Country: None (occurrence: US)
  Receive Date: 20140312
  Receipt Date: 20140312
  Transmission Date: 20141002
  Serious: No
  Sender: FDA-Public Use
  Company Number: US-INCYTE CORPORATION-2012IN000105

PATIENT
  Age: 85 Year
  Sex: Male

DRUGS (4)
  1. JAKAFI [Suspect]
     Indication: MYELOFIBROSIS
     Dosage: 20 MG, BID
     Route: 048
     Dates: start: 20111216
  2. XALATAN [Concomitant]
     Dosage: 1 GTT IN EACH EYE, QD
     Route: 047
  3. AZOPT [Concomitant]
     Dosage: 1 GTT IN EACH EYE, TID
     Route: 047
  4. ASPIRIN [Concomitant]
     Dosage: 81 MG, QD

REACTIONS (1)
  - Asthenia [Not Recovered/Not Resolved]
